FAERS Safety Report 5130519-X (Version None)
Quarter: 2006Q4

REPORT INFORMATION
  Report Type: 
  Country: None (occurrence: None)
  Receive Date: 20061019
  Receipt Date: 20061017
  Transmission Date: 20070319
  Serious: Yes (Other)
  Sender: FDA-Public Use
  Company Number: US-GLAXOSMITHKLINE-A0623824A

PATIENT
  Age: 44 Year
  Sex: Female

DRUGS (4)
  1. CITRUCEL REGULAR SUSPENSION [Suspect]
     Indication: GASTROINTESTINAL DISORDER
     Dosage: 1TBS SINGLE DOSE
     Route: 048
     Dates: start: 20061016, end: 20061016
  2. IMODIUM [Concomitant]
  3. VICODIN [Concomitant]
  4. LIBRAX [Concomitant]

REACTIONS (9)
  - ABDOMINAL DISTENSION [None]
  - ABDOMINAL PAIN [None]
  - ABDOMINAL RIGIDITY [None]
  - DIARRHOEA [None]
  - ERUCTATION [None]
  - FAECAL INCONTINENCE [None]
  - FLATULENCE [None]
  - IRRITABLE BOWEL SYNDROME [None]
  - RECTAL HAEMORRHAGE [None]
